FAERS Safety Report 7901425-X (Version None)
Quarter: 2011Q4

REPORT INFORMATION
  Report Type: 
  Country: None (occurrence: None)
  Receive Date: 20111108
  Receipt Date: 20111101
  Transmission Date: 20120403
  Serious: Yes (Hospitalization)
  Sender: FDA-Public Use
  Company Number: JP-JNJFOC-20111102390

PATIENT
  Sex: Male

DRUGS (1)
  1. PREZISTA [Suspect]
     Indication: HIV INFECTION
     Route: 048
     Dates: end: 20110101

REACTIONS (2)
  - FACE OEDEMA [None]
  - RASH GENERALISED [None]
